FAERS Safety Report 8902372 (Version 4)
Quarter: 2013Q2

REPORT INFORMATION
  Report Type: Spontaneous
  Country: US (occurrence: US)
  Receive Date: 20121112
  Receipt Date: 20130422
  Transmission Date: 20140414
  Serious: Yes (Hospitalization, Other)
  Sender: FDA-Public Use
  Company Number: US-009507513-1211USA001591

PATIENT
  Sex: Female
  Weight: 117.1 kg

DRUGS (4)
  1. FOSAMAX [Suspect]
     Indication: OSTEOPOROSIS
     Dosage: 10 MG, QD
     Route: 048
     Dates: start: 1995, end: 2009
  2. ASCORBIC ACID [Concomitant]
     Dosage: 2000 MG, QD
     Dates: start: 1990
  3. GLUCOSAMINE [Concomitant]
     Dosage: UNK
     Dates: start: 1990
  4. CALCIUM (UNSPECIFIED) (+) VITAMIN D (UNSPECIFIED) [Concomitant]
     Dosage: UNK
     Dates: start: 2010

REACTIONS (33)
  - Femur fracture [Unknown]
  - Intramedullary rod insertion [Unknown]
  - Breast cancer [Unknown]
  - Mastectomy [Unknown]
  - Cataract [Unknown]
  - Cataract operation [Unknown]
  - Biopsy lymph gland [Unknown]
  - Lymphadenectomy [Unknown]
  - Metastatic lymphoma [Unknown]
  - Skin cancer [Unknown]
  - Cataract operation [Unknown]
  - Knee operation [Unknown]
  - Diabetes mellitus [Unknown]
  - Vitamin D deficiency [Unknown]
  - Cystitis [Unknown]
  - Osteoarthritis [Unknown]
  - Papule [Unknown]
  - Fall [Unknown]
  - Hyperlipidaemia [Unknown]
  - Photophobia [Unknown]
  - Motion sickness [Unknown]
  - Procedural nausea [Unknown]
  - Procedural vomiting [Unknown]
  - Bundle branch block right [Unknown]
  - Lymphoedema [Unknown]
  - Osteopenia [Unknown]
  - Pulmonary mass [Unknown]
  - Anaemia [Unknown]
  - Haematoma [Unknown]
  - Constipation [Unknown]
  - Arthralgia [Unknown]
  - Headache [Unknown]
  - Nausea [Unknown]
